FAERS Safety Report 11593701 (Version 1)
Quarter: 2015Q4

REPORT INFORMATION
  Report Type: Spontaneous
  Country: US (occurrence: US)
  Receive Date: 20151005
  Receipt Date: 20151005
  Transmission Date: 20160304
  Serious: Yes (Life-Threatening, Congenital Anomaly, Other)
  Sender: FDA-Public Use
  Company Number: US-GLAXOSMITHKLINE-US2015GSK140321

PATIENT

DRUGS (1)
  1. ONDANSETRON [Suspect]
     Active Substance: ONDANSETRON
     Indication: VOMITING IN PREGNANCY
     Dosage: UNK
     Route: 064

REACTIONS (6)
  - Heterotaxia [Unknown]
  - Pulmonary valve stenosis congenital [Unknown]
  - Atrioventricular septal defect [Unknown]
  - Intestinal malrotation [Unknown]
  - Double outlet right ventricle [Unknown]
  - Foetal exposure during pregnancy [Unknown]
